FAERS Safety Report 5652013-X (Version None)
Quarter: 2008Q1

REPORT INFORMATION
  Report Type: 
  Country: None (occurrence: None)
  Receive Date: 20080131
  Receipt Date: 20071119
  Transmission Date: 20080703
  Serious: No
  Sender: FDA-Public Use
  Company Number: US200711004709

PATIENT
  Age: 60 Year
  Sex: Female

DRUGS (2)
  1. BYETTA [Suspect]
     Indication: INSULIN-REQUIRING TYPE 2 DIABETES MELLITUS
     Dosage: 5 UG, 2/D, SUBCUTANEOUS
     Route: 058
     Dates: start: 20070925
  2. NOVOLOG [Concomitant]

REACTIONS (4)
  - BLOOD GLUCOSE DECREASED [None]
  - INFLUENZA [None]
  - PAIN [None]
  - WEIGHT DECREASED [None]
